FAERS Safety Report 18329605 (Version 1)
Quarter: 2020Q3

REPORT INFORMATION
  Report Type: Spontaneous
  Country: US (occurrence: US)
  Receive Date: 20200930
  Receipt Date: 20200930
  Transmission Date: 20201103
  Serious: Yes (Life-Threatening, Other)
  Sender: FDA-Public Use
  Company Number: None

PATIENT
  Sex: Female
  Weight: 90.72 kg

DRUGS (18)
  1. AMLODIPINE [Concomitant]
     Active Substance: AMLODIPINE BESYLATE
  2. LISINOPRIL. [Concomitant]
     Active Substance: LISINOPRIL
  3. GLUCOSAMINE + CHRONDROITIN [Concomitant]
  4. ALBUTEROL INHALER [Suspect]
     Active Substance: ALBUTEROL
     Indication: ASTHMA
     Route: 055
     Dates: start: 20200801, end: 20200819
  5. LORATADINE. [Concomitant]
     Active Substance: LORATADINE
  6. DICLOFENAC GEL [Concomitant]
     Active Substance: DICLOFENAC
  7. BUSPIRONE [Concomitant]
     Active Substance: BUSPIRONE HYDROCHLORIDE
  8. CPAP MACHINE [Concomitant]
  9. VITAMINS D3 [Concomitant]
  10. OMEGA 3 [Concomitant]
     Active Substance: OMEGA-3 FATTY ACIDS
  11. VITAMIN C [Concomitant]
     Active Substance: ASCORBIC ACID
  12. BUPROPION. [Concomitant]
     Active Substance: BUPROPION
  13. LEVOTHYROXINE. [Concomitant]
     Active Substance: LEVOTHYROXINE
  14. BRACES (BILATERAL) UPPER EXTREMITIES [Concomitant]
  15. VITAMIN B12 [Concomitant]
     Active Substance: CYANOCOBALAMIN
  16. SUPER ENZYMES [Concomitant]
  17. ACETAMINOPHEN. [Concomitant]
     Active Substance: ACETAMINOPHEN
  18. COENZYME Q10 [Concomitant]
     Active Substance: DIETARY SUPPLEMENT\UBIDECARENONE

REACTIONS (3)
  - Dyspnoea [None]
  - Device malfunction [None]
  - Insomnia [None]
